FAERS Safety Report 5704516-7 (Version None)
Quarter: 2008Q2

REPORT INFORMATION
  Report Type: 
  Country: None (occurrence: None)
  Receive Date: 20080411
  Receipt Date: 20080411
  Transmission Date: 20081010
  Serious: Yes (Hospitalization, Disabling)
  Sender: FDA-Public Use
  Company Number: None

PATIENT
  Age: 63 Year
  Sex: Female
  Weight: 86.1834 kg

DRUGS (2)
  1. GEODON [Suspect]
     Indication: BIPOLAR DISORDER
     Dosage: 20MG THREE TIMES IM
     Route: 030
     Dates: start: 20080226, end: 20080228
  2. HALDOL [Suspect]
     Indication: BIPOLAR DISORDER
     Dosage: 5MG ONCE PO
     Route: 048
     Dates: start: 20080228, end: 20080228

REACTIONS (1)
  - NEUROMYOPATHY [None]
